FAERS Safety Report 8043666-X (Version None)
Quarter: 2012Q1

REPORT INFORMATION
  Report Type: 
  Country: None (occurrence: None)
  Receive Date: 20120112
  Receipt Date: 20120109
  Transmission Date: 20120608
  Serious: Yes (Disabling)
  Sender: FDA-Public Use
  Company Number: CA-MERCK-1201USA01029

PATIENT
  Age: 40 Year
  Sex: Male
  Weight: 79 kg

DRUGS (1)
  1. PROPECIA [Suspect]
     Route: 048

REACTIONS (13)
  - ERECTILE DYSFUNCTION [None]
  - TESTICULAR ATROPHY [None]
  - WHITE BLOOD CELL COUNT DECREASED [None]
  - ARTHRALGIA [None]
  - PLATELET COUNT DECREASED [None]
  - BLOOD BILIRUBIN INCREASED [None]
  - FATIGUE [None]
  - HYPOTHYROIDISM [None]
  - ANORGASMIA [None]
  - NEUTROPHIL COUNT DECREASED [None]
  - SUICIDAL IDEATION [None]
  - BLOOD FOLLICLE STIMULATING HORMONE INCREASED [None]
  - DEPRESSION [None]
